FAERS Safety Report 23405369 (Version 1)
Quarter: 2024Q1

REPORT INFORMATION
  Report Type: Spontaneous
  Country: US (occurrence: None)
  Receive Date: 20240112
  Receipt Date: 20240112
  Transmission Date: 20240410
  Serious: Yes (Death)
  Sender: FDA-Public Use
  Company Number: None

PATIENT
  Age: 77 Year
  Sex: Male

DRUGS (2)
  1. APIXABAN [Suspect]
     Active Substance: APIXABAN
  2. ASPIRIN [Suspect]
     Active Substance: ASPIRIN

REACTIONS (8)
  - Subarachnoid haemorrhage [None]
  - Intraventricular haemorrhage [None]
  - Ruptured cerebral aneurysm [None]
  - Atrial fibrillation [None]
  - Electrocardiogram QT prolonged [None]
  - International normalised ratio increased [None]
  - Haemoglobin increased [None]
  - Transfusion [None]

NARRATIVE: CASE EVENT DATE: 20231117
